FAERS Safety Report 8367808-1 (Version None)
Quarter: 2012Q2

REPORT INFORMATION
  Report Type: 
  Country: None (occurrence: None)
  Receive Date: 20120517
  Receipt Date: 20120512
  Transmission Date: 20120825
  Serious: Yes (Death)
  Sender: FDA-Public Use
  Company Number: US-CELGENEUS-163-50794-12051562

PATIENT
  Age: 49 Year
  Sex: Female
  Weight: 91.62 kg

DRUGS (4)
  1. MITOXANTRONE HYDROCHLORIDE [Suspect]
     Dosage: 6 MILLIGRAM/SQ. METER
     Route: 041
     Dates: start: 20120328, end: 20120404
  2. VIDAZA [Suspect]
     Dosage: 50 MILLIGRAM/SQ. METER
     Route: 041
     Dates: start: 20120328, end: 20120404
  3. ETOPOSIDE [Suspect]
     Dosage: 80 MILLIGRAM/SQ. METER
     Route: 041
     Dates: start: 20120328, end: 20120404
  4. CYTARABINE [Suspect]
     Dosage: 1 G/M2
     Route: 041
     Dates: start: 20120328, end: 20120404

REACTIONS (1)
  - SEPSIS [None]
